FAERS Safety Report 4674617-3 (Version None)
Quarter: 2005Q2

REPORT INFORMATION
  Report Type: 
  Country: None (occurrence: None)
  Receive Date: 20050526
  Receipt Date: 20050519
  Transmission Date: 20051028
  Serious: Yes (Other)
  Sender: FDA-Public Use
  Company Number: 2201165

PATIENT
  Age: 21 Year
  Sex: Female

DRUGS (3)
  1. ASPIRIN [Suspect]
     Indication: DEPRESSED MOOD
     Route: 048
     Dates: start: 20050519, end: 20050519
  2. TYLENOL (CAPLET) [Suspect]
     Indication: DEPRESSED MOOD
     Route: 048
  3. IBUPROFEN [Suspect]
     Indication: DEPRESSED MOOD
     Route: 048

REACTIONS (3)
  - INTENTIONAL MISUSE [None]
  - TINNITUS [None]
  - VOMITING [None]
